FAERS Safety Report 12627275 (Version 2)
Quarter: 2017Q1

REPORT INFORMATION
  Report Type: Report from Study
  Country: PL (occurrence: PL)
  Receive Date: 20160805
  Receipt Date: 20170302
  Transmission Date: 20170428
  Serious: Yes (Hospitalization, Other)
  Sender: FDA-Public Use
  Company Number: PL-B.I. PHARMACEUTICALS,INC./RIDGEFIELD-2016-BI-50249BI

PATIENT
  Age: 83 Year
  Sex: Male

DRUGS (1)
  1. PRADAXA [Suspect]
     Active Substance: DABIGATRAN ETEXILATE MESYLATE
     Indication: ATRIAL FIBRILLATION
     Route: 065

REACTIONS (6)
  - Acute aortic syndrome [Unknown]
  - Procedural haemorrhage [Unknown]
  - Aortic valve incompetence [Unknown]
  - Aortic intramural haematoma [Unknown]
  - Chronic kidney disease [Unknown]
  - Pneumonia [Recovered/Resolved]
